FAERS Safety Report 21440942 (Version 1)
Quarter: 2022Q4

REPORT INFORMATION
  Report Type: Report from Study
  Country: US (occurrence: US)
  Receive Date: 20221011
  Receipt Date: 20221011
  Transmission Date: 20230112
  Serious: No
  Sender: FDA-Public Use
  Company Number: US-NOVARTISTESTPH-NVSC2022US228673

PATIENT
  Sex: Male

DRUGS (1)
  1. ENTRESTO [Suspect]
     Active Substance: SACUBITRIL\VALSARTAN
     Indication: Product used for unknown indication
     Dosage: 100 MG, BID,  (49/51 MG: SACUBITRIL 48.6MG, VALSARTAN 51.4MG)
     Route: 065

REACTIONS (2)
  - Localised oedema [Recovering/Resolving]
  - Weight decreased [Unknown]
